FAERS Safety Report 10213617 (Version 1)
Quarter: 2014Q2

REPORT INFORMATION
  Report Type: Spontaneous
  Country: US (occurrence: US)
  Receive Date: 20140603
  Receipt Date: 20140603
  Transmission Date: 20141212
  Serious: No
  Sender: FDA-Public Use
  Company Number: US-UPSHER-SMITH LABORATORIES, INC.-13003392

PATIENT
  Age: 65 Year
  Sex: Female

DRUGS (4)
  1. PACERONE (USL) [Suspect]
     Indication: ATRIAL FIBRILLATION
     Dosage: 200 MG, QD
     Route: 048
     Dates: start: 201308, end: 201308
  2. TOPROL XL [Concomitant]
     Dosage: UNK
  3. GLUCOVANCE                         /01182201/ [Concomitant]
     Dosage: UNK
  4. ASPIRIN [Concomitant]
     Dosage: 81 MG, QD
     Route: 048

REACTIONS (2)
  - Palpitations [Not Recovered/Not Resolved]
  - Dyspnoea exertional [Not Recovered/Not Resolved]
